FAERS Safety Report 11504765 (Version 1)
Quarter: 2015Q3

REPORT INFORMATION
  Report Type: Spontaneous
  Country: US (occurrence: US)
  Receive Date: 20150915
  Receipt Date: 20150915
  Transmission Date: 20151125
  Serious: No
  Sender: FDA-Public Use
  Company Number: US-ROCHE-798479

PATIENT
  Sex: Female

DRUGS (3)
  1. PEGASYS [Suspect]
     Active Substance: PEGINTERFERON ALFA-2A
     Indication: CHRONIC HEPATITIS C
     Dosage: FOR 48 WEEK
     Route: 058
  2. COPEGUS [Suspect]
     Active Substance: RIBAVIRIN
     Indication: CHRONIC HEPATITIS C
     Dosage: IN DIVIDED DOSES 300/200  ?FOR 48 WEEK
     Route: 048
  3. DESYREL [Concomitant]
     Active Substance: TRAZODONE HYDROCHLORIDE
     Route: 065

REACTIONS (8)
  - Insomnia [Unknown]
  - Oropharyngeal pain [Recovering/Resolving]
  - Lymphadenopathy [Unknown]
  - Influenza like illness [Unknown]
  - White blood cell count increased [Unknown]
  - Vision blurred [Unknown]
  - Nasal inflammation [Unknown]
  - Headache [Unknown]
